FAERS Safety Report 5287262-6 (Version None)
Quarter: 2007Q2

REPORT INFORMATION
  Report Type: 
  Country: None (occurrence: None)
  Receive Date: 20070404
  Receipt Date: 20070326
  Transmission Date: 20071010
  Serious: Yes (Other)
  Sender: FDA-Public Use
  Company Number: US-PFIZER INC-2007024664

PATIENT
  Sex: Female
  Weight: 64.4 kg

DRUGS (2)
  1. LYRICA [Suspect]
     Indication: NEUROPATHY
  2. RELAFEN [Concomitant]

REACTIONS (3)
  - DIZZINESS [None]
  - MUSCLE DISORDER [None]
  - WEIGHT INCREASED [None]
